FAERS Safety Report 12434623 (Version 3)
Quarter: 2016Q3

REPORT INFORMATION
  Report Type: Spontaneous
  Country: US (occurrence: US)
  Receive Date: 20160603
  Receipt Date: 20160718
  Transmission Date: 20161109
  Serious: Yes (Hospitalization)
  Sender: FDA-Public Use
  Company Number: US-TAIHO ONCOLOGY INC-EU-2016-00933

PATIENT
  Age: 69 Year
  Sex: Female
  Weight: 75.6 kg

DRUGS (11)
  1. LONSURF [Suspect]
     Active Substance: TIPIRACIL HYDROCHLORIDE\TRIFLURIDINE
     Indication: COLON CANCER
     Route: 048
     Dates: start: 20160116, end: 20160512
  2. MUCINEX [Concomitant]
     Active Substance: GUAIFENESIN
     Dosage: NI
  3. IBUPROFEN. [Concomitant]
     Active Substance: IBUPROFEN
     Indication: PAIN
     Dosage: NI
  4. ATIVAN [Concomitant]
     Active Substance: LORAZEPAM
     Indication: SLEEP DISORDER
     Dosage: NI
  5. PYRIDOXINE HYDROCHLORIDE. [Concomitant]
     Active Substance: PYRIDOXINE HYDROCHLORIDE
     Dosage: NI
  6. MAG-OX [Concomitant]
     Active Substance: MAGNESIUM OXIDE
     Dosage: NI
  7. NORVASC [Concomitant]
     Active Substance: AMLODIPINE BESYLATE
     Dosage: NI
  8. CARDIZEM [Concomitant]
     Active Substance: DILTIAZEM HYDROCHLORIDE
     Dosage: NI
  9. LEVOTHYROXINE. [Concomitant]
     Active Substance: LEVOTHYROXINE
     Dosage: NI
  10. SALBUTAMOL [Concomitant]
     Active Substance: ALBUTEROL
     Indication: WHEEZING
     Dosage: NI
  11. POTASSIUM [Concomitant]
     Active Substance: POTASSIUM
     Dosage: NI

REACTIONS (9)
  - Heart rate increased [Unknown]
  - Malaise [Recovered/Resolved]
  - Diarrhoea [Recovered/Resolved]
  - Pneumonia [Recovered/Resolved]
  - Neutropenia [Recovered/Resolved]
  - Lung infection [Unknown]
  - Confusional state [Recovered/Resolved]
  - Disease progression [Unknown]
  - Back pain [Recovered/Resolved]

NARRATIVE: CASE EVENT DATE: 2016
